FAERS Safety Report 7341464-3 (Version None)
Quarter: 2011Q1

REPORT INFORMATION
  Report Type: 
  Country: None (occurrence: None)
  Receive Date: 20110309
  Receipt Date: 20101117
  Transmission Date: 20110831
  Serious: Yes (Hospitalization)
  Sender: FDA-Public Use
  Company Number: US-BAYER-201019502NA

PATIENT
  Sex: Female
  Weight: 73 kg

DRUGS (6)
  1. ZOLOFT [Concomitant]
     Indication: DEPRESSION
  2. YAZ [Suspect]
     Indication: METRORRHAGIA
  3. IBUPROFEN [Concomitant]
     Indication: HEADACHE
     Dosage: AS DIRECTED
     Dates: start: 20080620
  4. YAZ [Suspect]
     Indication: MENORRHAGIA
     Route: 048
     Dates: start: 20070401, end: 20080601
  5. YAZ [Suspect]
     Indication: HORMONE THERAPY
  6. ZOLOFT [Concomitant]
     Indication: ANXIETY
     Dosage: 25 MG/DAY
     Dates: start: 20060101, end: 20090615

REACTIONS (4)
  - PULMONARY EMBOLISM [None]
  - CHEST PAIN [None]
  - NECK PAIN [None]
  - DYSPNOEA [None]
